FAERS Safety Report 12373100 (Version 1)
Quarter: 2016Q2

REPORT INFORMATION
  Report Type: Spontaneous
  Country: US (occurrence: US)
  Receive Date: 20160516
  Receipt Date: 20160516
  Transmission Date: 20160815
  Serious: Yes (Other)
  Sender: FDA-Public Use
  Company Number: US-MALLINCKRODT-T201600578

PATIENT
  Age: 54 Year
  Sex: Male
  Weight: 98 kg

DRUGS (10)
  1. H.P. ACTHAR [Suspect]
     Active Substance: CORTICOTROPIN
     Indication: SARCOIDOSIS
     Dosage: 80 UNITS TWICE WKLY
     Route: 065
     Dates: start: 2015, end: 201601
  2. ALBUTEROL. [Concomitant]
     Active Substance: ALBUTEROL
  3. PENTOXIFYLLINE. [Concomitant]
     Active Substance: PENTOXIFYLLINE
     Dosage: 400 MG (EXTENDED RELEASE)
  4. HYDROMET [Concomitant]
     Active Substance: HOMATROPINE METHYLBROMIDE\HYDROCODONE BITARTRATE
     Dosage: PRN
     Dates: start: 201602
  5. HYDROCODONE [Concomitant]
     Active Substance: HYDROCODONE
     Dosage: 7.5/325 MG
  6. CLARITIN [Concomitant]
     Active Substance: LORATADINE
  7. IBU [Concomitant]
     Active Substance: IBUPROFEN
     Dosage: 800 MG PRN
  8. VALSARTAN AND HYDROCHLOROTHIAZIDE [Concomitant]
     Active Substance: HYDROCHLOROTHIAZIDE\VALSARTAN
     Dosage: 320/12.5 BID
  9. SOMA [Concomitant]
     Active Substance: CARISOPRODOL
     Dosage: 250 MG
  10. XANAX [Concomitant]
     Active Substance: ALPRAZOLAM

REACTIONS (1)
  - Blood pressure increased [Unknown]

NARRATIVE: CASE EVENT DATE: 20160119
